FAERS Safety Report 18787202 (Version 2)
Quarter: 2021Q1

REPORT INFORMATION
  Report Type: Report from Study
  Country: US (occurrence: US)
  Receive Date: 20210126
  Receipt Date: 20210309
  Transmission Date: 20210419
  Serious: Yes (Hospitalization)
  Sender: FDA-Public Use
  Company Number: US-ROCHE-2757469

PATIENT
  Age: 43 Year
  Sex: Male
  Weight: 77.63 kg

DRUGS (12)
  1. GABAPENTIN. [Concomitant]
     Active Substance: GABAPENTIN
     Dosage: 300 MG ADDITIONALLY ONCE DAILY.
  2. PIRFENIDONE. [Suspect]
     Active Substance: PIRFENIDONE
     Indication: RESTRICTIVE ALLOGRAFT SYNDROME
     Route: 048
     Dates: start: 20190808
  3. PIPERACILLIN AND TAZOBACTAM [Concomitant]
     Active Substance: PIPERACILLIN SODIUM\TAZOBACTAM SODIUM
     Dosage: IVPB 3.375 GRAMS IN DEXTROSE ISO?OSM 50 ML IVPB ADMINISTERED ONCE OVER 4 HOURS
  4. MYCOPHENOLATE MOFETIL. [Concomitant]
     Active Substance: MYCOPHENOLATE MOFETIL
  5. VANCOMYCIN [Concomitant]
     Active Substance: VANCOMYCIN
     Dosage: 0.9 PERCENT SODIUM CHLORIDE 1.25G/250ML IVPB 1250 MG ADMINISTERED OVER 90 MINUTES ONCE YESTERDAY 1/2
  6. TACROLIMUS. [Concomitant]
     Active Substance: TACROLIMUS
  7. ALBUTEROL SULFATE. [Concomitant]
     Active Substance: ALBUTEROL SULFATE
     Dosage: 90MCG/ACTUATION 2 PUFFS INHALATION
  8. METFORMIN [Concomitant]
     Active Substance: METFORMIN HYDROCHLORIDE
  9. PREDNISONE. [Concomitant]
     Active Substance: PREDNISONE
  10. SERTRALINE [Concomitant]
     Active Substance: SERTRALINE HYDROCHLORIDE
  11. ATORVASTATIN [Concomitant]
     Active Substance: ATORVASTATIN
  12. OMEPRAZOLE. [Concomitant]
     Active Substance: OMEPRAZOLE

REACTIONS (1)
  - Dyspnoea [Recovered/Resolved]

NARRATIVE: CASE EVENT DATE: 20210120
